FAERS Safety Report 10195562 (Version 2)
Quarter: 2019Q3

REPORT INFORMATION
  Report Type: Spontaneous
  Country: FR (occurrence: FR)
  Receive Date: 20140527
  Receipt Date: 20190912
  Transmission Date: 20191004
  Serious: Yes (Death, Other)
  Sender: FDA-Public Use
  Company Number: PHHY2014FR062900

PATIENT
  Age: 60 Year
  Sex: Female

DRUGS (16)
  1. ZOPICLONE [Suspect]
     Active Substance: ZOPICLONE
     Indication: SUICIDE ATTEMPT
  2. CYAMEMAZINE [Suspect]
     Active Substance: CYAMEMAZINE
     Indication: COMPLETED SUICIDE
  3. LORMETAZEPAM [Suspect]
     Active Substance: LORMETAZEPAM
     Indication: COMPLETED SUICIDE
  4. ALPRAZOLAM. [Suspect]
     Active Substance: ALPRAZOLAM
     Indication: COMPLETED SUICIDE
     Dosage: UNK UNK, QD, TOTAL
     Route: 048
  5. LORAZEPAM. [Suspect]
     Active Substance: LORAZEPAM
     Indication: COMPLETED SUICIDE
     Dosage: UNK UNK, QD, TOTAL
     Route: 048
  6. OXAZEPAM. [Suspect]
     Active Substance: OXAZEPAM
     Indication: COMPLETED SUICIDE
  7. QUETIAPINE FUMARATE. [Suspect]
     Active Substance: QUETIAPINE FUMARATE
     Indication: SUICIDE ATTEMPT
  8. BROMAZEPAM [Suspect]
     Active Substance: BROMAZEPAM
     Indication: SUICIDE ATTEMPT
     Dosage: UNK UNK, QD, TOTAL
     Route: 048
  9. ALPRAZOLAM. [Suspect]
     Active Substance: ALPRAZOLAM
     Indication: SUICIDE ATTEMPT
  10. LORMETAZEPAM [Suspect]
     Active Substance: LORMETAZEPAM
     Indication: SUICIDE ATTEMPT
     Dosage: UNK UNK, QD, TOTAL
     Route: 048
  11. QUETIAPINE FUMARATE. [Suspect]
     Active Substance: QUETIAPINE FUMARATE
     Indication: COMPLETED SUICIDE
     Dosage: UNK UNK, QD, TOTAL
     Route: 048
  12. OXAZEPAM. [Suspect]
     Active Substance: OXAZEPAM
     Indication: SUICIDE ATTEMPT
     Dosage: UNK UNK, QD, TOTAL
     Route: 048
  13. LORAZEPAM. [Suspect]
     Active Substance: LORAZEPAM
     Indication: SUICIDE ATTEMPT
  14. CYAMEMAZINE [Suspect]
     Active Substance: CYAMEMAZINE
     Indication: SUICIDE ATTEMPT
     Dosage: UNK UNK, QD, TOTAL
     Route: 048
  15. BROMAZEPAM [Suspect]
     Active Substance: BROMAZEPAM
     Indication: COMPLETED SUICIDE
  16. ZOPICLONE [Suspect]
     Active Substance: ZOPICLONE
     Indication: COMPLETED SUICIDE
     Dosage: UNK UNK, QD, TOTAL
     Route: 048

REACTIONS (4)
  - Potentiating drug interaction [Fatal]
  - Intentional overdose [Fatal]
  - Completed suicide [Fatal]
  - Toxicity to various agents [Fatal]
